FAERS Safety Report 6838836-X (Version None)
Quarter: 2010Q3

REPORT INFORMATION
  Report Type: 
  Country: None (occurrence: None)
  Receive Date: 20100713
  Receipt Date: 20070804
  Transmission Date: 20110219
  Serious: No
  Sender: FDA-Public Use
  Company Number: US-PFIZER INC-2007038591

PATIENT
  Sex: Female
  Weight: 57 kg

DRUGS (5)
  1. CHANTIX [Suspect]
     Indication: SMOKING CESSATION THERAPY
     Dates: start: 20070415
  2. ACETYLSALICYLIC ACID [Concomitant]
  3. DETROL LA [Concomitant]
     Indication: BLADDER DISORDER
     Dates: start: 20070504
  4. PREVACID [Concomitant]
  5. PREMARIN [Concomitant]

REACTIONS (3)
  - MUSCLE SPASMS [None]
  - MYALGIA [None]
  - PAIN IN EXTREMITY [None]
